FAERS Safety Report 5921830-0 (Version None)
Quarter: 2008Q4

REPORT INFORMATION
  Report Type: 
  Country: None (occurrence: None)
  Receive Date: 20081016
  Receipt Date: 20081016
  Transmission Date: 20090506
  Serious: Yes (Hospitalization)
  Sender: FDA-Public Use
  Company Number: None

PATIENT
  Age: 66 Year
  Sex: Female
  Weight: 86 kg

DRUGS (16)
  1. DAPTOMYCIN 500MG CUBIST [Suspect]
     Indication: ABSCESS LIMB
     Dosage: 500MG DAILY IV
     Route: 042
     Dates: start: 20080918, end: 20081008
  2. DAPTOMYCIN 500MG CUBIST [Suspect]
     Indication: ARTHRITIS INFECTIVE
     Dosage: 500MG DAILY IV
     Route: 042
     Dates: start: 20080918, end: 20081008
  3. HYDROCHLOROTHIAZIDE [Concomitant]
  4. COZAAR [Concomitant]
  5. SIMVASTATIN [Concomitant]
  6. NAPROXEN [Concomitant]
  7. CLONAZEPAM [Concomitant]
  8. VICODIN [Concomitant]
  9. PRILOSEC [Concomitant]
  10. BENADRYL [Concomitant]
  11. ASCORBIC ACID [Concomitant]
  12. ZINC [Concomitant]
  13. IRON [Concomitant]
  14. CALCIUM [Concomitant]
  15. POTASSIUM CHLORIDE [Concomitant]
  16. FISH OIL [Concomitant]

REACTIONS (3)
  - EOSINOPHILIA [None]
  - HYPOXIA [None]
  - PNEUMONITIS [None]
